FAERS Safety Report 22537067 (Version 1)
Quarter: 2023Q2

REPORT INFORMATION
  Report Type: Report from Study
  Country: ES (occurrence: ES)
  Receive Date: 20230608
  Receipt Date: 20230608
  Transmission Date: 20230721
  Serious: Yes (Life-Threatening, Hospitalization)
  Sender: FDA-Public Use
  Company Number: ES-Y-mAbs Therapeutics A/S-2019-ES-000008-FU 2

PATIENT
  Age: 7 Year
  Sex: Female
  Weight: 19.6 kg

DRUGS (31)
  1. LORAZEPAM [Suspect]
     Active Substance: LORAZEPAM
     Dosage: UNK
     Dates: start: 20180925
  2. GRANULOCYTE-MACROPHAGE COLONY-STIMULATING FACTOR [Suspect]
     Active Substance: GRANULOCYTE-MACROPHAGE COLONY-STIMULATING FACTOR
     Indication: Brain cancer metastatic
     Dosage: 250 UG/M2
     Route: 058
     Dates: start: 20180117, end: 20180117
  3. GRANULOCYTE-MACROPHAGE COLONY-STIMULATING FACTOR [Suspect]
     Active Substance: GRANULOCYTE-MACROPHAGE COLONY-STIMULATING FACTOR
     Dosage: 250 UG/M2
     Route: 058
     Dates: start: 20180214, end: 20180218
  4. GRANULOCYTE-MACROPHAGE COLONY-STIMULATING FACTOR [Suspect]
     Active Substance: GRANULOCYTE-MACROPHAGE COLONY-STIMULATING FACTOR
     Dosage: 500 UG/M2
     Route: 058
     Dates: start: 20180219, end: 20180223
  5. GRANULOCYTE-MACROPHAGE COLONY-STIMULATING FACTOR [Suspect]
     Active Substance: GRANULOCYTE-MACROPHAGE COLONY-STIMULATING FACTOR
     Dosage: 250 UG/M2
     Route: 058
     Dates: start: 20180314, end: 20180318
  6. GRANULOCYTE-MACROPHAGE COLONY-STIMULATING FACTOR [Suspect]
     Active Substance: GRANULOCYTE-MACROPHAGE COLONY-STIMULATING FACTOR
     Dosage: 500 UG/M2
     Route: 058
     Dates: start: 20180319, end: 20180323
  7. GRANULOCYTE-MACROPHAGE COLONY-STIMULATING FACTOR [Suspect]
     Active Substance: GRANULOCYTE-MACROPHAGE COLONY-STIMULATING FACTOR
     Dosage: 250 UG/M2
     Route: 058
     Dates: start: 20180425, end: 20180429
  8. GRANULOCYTE-MACROPHAGE COLONY-STIMULATING FACTOR [Suspect]
     Active Substance: GRANULOCYTE-MACROPHAGE COLONY-STIMULATING FACTOR
     Dosage: 500 UG/M2
     Route: 058
     Dates: start: 20180430, end: 20180504
  9. GRANULOCYTE-MACROPHAGE COLONY-STIMULATING FACTOR [Suspect]
     Active Substance: GRANULOCYTE-MACROPHAGE COLONY-STIMULATING FACTOR
     Dosage: 250 UG/M2
     Route: 058
     Dates: start: 20180913, end: 20180917
  10. GRANULOCYTE-MACROPHAGE COLONY-STIMULATING FACTOR [Suspect]
     Active Substance: GRANULOCYTE-MACROPHAGE COLONY-STIMULATING FACTOR
     Dosage: 500 UG/M2
     Route: 058
     Dates: start: 20180918, end: 20180925
  11. GRANULOCYTE-MACROPHAGE COLONY-STIMULATING FACTOR [Suspect]
     Active Substance: GRANULOCYTE-MACROPHAGE COLONY-STIMULATING FACTOR
     Dosage: 250 UG/M2
     Route: 058
     Dates: start: 20181010, end: 20181014
  12. GRANULOCYTE-MACROPHAGE COLONY-STIMULATING FACTOR [Suspect]
     Active Substance: GRANULOCYTE-MACROPHAGE COLONY-STIMULATING FACTOR
     Dosage: 500 UG/M2
     Route: 058
     Dates: start: 20181015, end: 20181017
  13. NAXITAMAB [Suspect]
     Active Substance: NAXITAMAB
     Indication: Neuroblastoma
     Dosage: 3 MG/KG
     Route: 042
     Dates: start: 20180122, end: 20180122
  14. NAXITAMAB [Suspect]
     Active Substance: NAXITAMAB
     Dosage: 3 MG/KG
     Route: 042
     Dates: start: 20180124, end: 20180124
  15. NAXITAMAB [Suspect]
     Active Substance: NAXITAMAB
     Dosage: 3 MG/KG
     Route: 042
     Dates: start: 20180126, end: 20180126
  16. NAXITAMAB [Suspect]
     Active Substance: NAXITAMAB
     Dosage: 3 MG/KG
     Route: 042
     Dates: start: 20180219, end: 20180219
  17. NAXITAMAB [Suspect]
     Active Substance: NAXITAMAB
     Dosage: 3 MG/KG
     Route: 042
     Dates: start: 20180221, end: 20180221
  18. NAXITAMAB [Suspect]
     Active Substance: NAXITAMAB
     Dosage: 3 MG/KG
     Route: 042
     Dates: start: 20180223, end: 20180223
  19. NAXITAMAB [Suspect]
     Active Substance: NAXITAMAB
     Dosage: 3 MG/KG
     Route: 042
     Dates: start: 20180319, end: 20180319
  20. NAXITAMAB [Suspect]
     Active Substance: NAXITAMAB
     Dosage: 3 MG/KG
     Route: 042
     Dates: start: 20180323, end: 20180323
  21. NAXITAMAB [Suspect]
     Active Substance: NAXITAMAB
     Dosage: 3 MG/KG
     Route: 042
     Dates: start: 20180430, end: 20180430
  22. NAXITAMAB [Suspect]
     Active Substance: NAXITAMAB
     Dosage: 3 MG/KG
     Route: 042
     Dates: start: 20180321, end: 20180321
  23. NAXITAMAB [Suspect]
     Active Substance: NAXITAMAB
     Dosage: 3 MG/KG
     Route: 042
     Dates: start: 20180502, end: 20180502
  24. NAXITAMAB [Suspect]
     Active Substance: NAXITAMAB
     Dosage: 3 MG/KG
     Route: 042
     Dates: start: 20180504, end: 20180504
  25. NAXITAMAB [Suspect]
     Active Substance: NAXITAMAB
     Dosage: 3 MG/KG
     Route: 042
     Dates: start: 20180918, end: 20180918
  26. NAXITAMAB [Suspect]
     Active Substance: NAXITAMAB
     Dosage: 3 MG/KG
     Route: 042
     Dates: start: 20180920, end: 20180920
  27. NAXITAMAB [Suspect]
     Active Substance: NAXITAMAB
     Dosage: 3 MG/KG
     Route: 042
     Dates: start: 20180925, end: 20180925
  28. NAXITAMAB [Suspect]
     Active Substance: NAXITAMAB
     Dosage: 3 MG/KG
     Route: 042
     Dates: start: 20181015, end: 20181015
  29. NAXITAMAB [Suspect]
     Active Substance: NAXITAMAB
     Dosage: 3 MG/KG
     Route: 042
     Dates: start: 20181017, end: 20181017
  30. NAXITAMAB [Suspect]
     Active Substance: NAXITAMAB
     Dosage: 3 MG/KG
     Route: 042
     Dates: start: 20181019, end: 20181019
  31. MORPHINE [Concomitant]
     Active Substance: MORPHINE
     Dosage: UNK
     Dates: start: 20180925

REACTIONS (1)
  - Laryngeal oedema [Recovered/Resolved]

NARRATIVE: CASE EVENT DATE: 20180925
